FAERS Safety Report 7730057-1 (Version None)
Quarter: 2011Q3

REPORT INFORMATION
  Report Type: 
  Country: None (occurrence: None)
  Receive Date: 20110906
  Receipt Date: 20110828
  Transmission Date: 20111222
  Serious: Yes (Other)
  Sender: FDA-Public Use
  Company Number: PHHY2011MX77051

PATIENT
  Age: 66 Year
  Sex: Male

DRUGS (6)
  1. METFORMIN HCL [Concomitant]
     Indication: DIABETES MELLITUS
     Dosage: 3 DF, PER DAY
     Route: 065
     Dates: start: 19980701
  2. ENALAPRIL MALEATE [Concomitant]
     Indication: HYPERTENSION
     Dosage: 1 DF, PER DAY
     Route: 065
     Dates: start: 20010801
  3. ZOMETA [Suspect]
     Indication: OSTEOPOROSIS
     Dosage: 4 MG, PER 5 ML
     Route: 065
     Dates: start: 20110701
  4. INSULINE [Concomitant]
     Indication: DIABETES MELLITUS
     Dosage: 2 DF, PER DAY
     Route: 065
     Dates: start: 19980701
  5. ASPIRIN [Concomitant]
     Indication: THROMBOSIS PROPHYLAXIS
     Dosage: 0.5 DF, PER DAY
     Route: 065
     Dates: start: 20030801
  6. PENTOXIFYLLINE [Concomitant]
     Indication: POOR PERIPHERAL CIRCULATION
     Dosage: 2 DF, PER DAY
     Route: 065
     Dates: start: 20030701

REACTIONS (5)
  - HAEMATOCHEZIA [None]
  - NAUSEA [None]
  - PENILE PAIN [None]
  - PROCTALGIA [None]
  - DECREASED APPETITE [None]
